FAERS Safety Report 5619583-9 (Version None)
Quarter: 2008Q1

REPORT INFORMATION
  Report Type: 
  Country: None (occurrence: None)
  Receive Date: 20080208
  Receipt Date: 20080130
  Transmission Date: 20080703
  Serious: Yes (Hospitalization)
  Sender: FDA-Public Use
  Company Number: US-BAYER-US-2007-041534

PATIENT
  Age: 29 Year
  Sex: Female
  Weight: 56 kg

DRUGS (1)
  1. YAZ [Suspect]
     Indication: ORAL CONTRACEPTION
     Route: 048
     Dates: start: 20070725, end: 20070813

REACTIONS (2)
  - DEEP VEIN THROMBOSIS [None]
  - MENORRHAGIA [None]
